FAERS Safety Report 8055450-1 (Version None)
Quarter: 2011Q4

REPORT INFORMATION
  Report Type: 
  Country: None (occurrence: None)
  Receive Date: 20111213
  Receipt Date: 20111025
  Transmission Date: 20120403
  Serious: No
  Sender: FDA-Public Use
  Company Number: 2011SP050608

PATIENT
  Age: 41 Year
  Sex: Female

DRUGS (4)
  1. PROAIR HFA [Concomitant]
  2. SINGULAIR [Concomitant]
  3. ADVAIR DISKUS 100/50 [Concomitant]
  4. SAPHRIS [Suspect]
     Indication: BIPOLAR DISORDER
     Dosage: 25 MG; ;SL
     Route: 060
     Dates: start: 20110401

REACTIONS (2)
  - OVERDOSE [None]
  - TOOTH DISCOLOURATION [None]
